FAERS Safety Report 13094762 (Version 1)
Quarter: 2017Q1

REPORT INFORMATION
  Report Type: Spontaneous
  Country: US (occurrence: US)
  Receive Date: 20170106
  Receipt Date: 20170106
  Transmission Date: 20170428
  Serious: No
  Sender: FDA-Public Use
  Company Number: US-WALMART PREMIER BRANDS OF AMERICA-1061658

PATIENT
  Age: 49 Year
  Sex: Female
  Weight: 81.82 kg

DRUGS (1)
  1. MAXIMUM STRENGTH WART REMOVER WITH SALICYLIC ACID [Suspect]
     Active Substance: SALICYLIC ACID
     Route: 003
     Dates: start: 20161211, end: 20161212

REACTIONS (1)
  - Application site burn [Recovering/Resolving]

NARRATIVE: CASE EVENT DATE: 20161211
